FAERS Safety Report 16997860 (Version 1)
Quarter: 2019Q4

REPORT INFORMATION
  Report Type: Spontaneous
  Country: US (occurrence: US)
  Receive Date: 20190924
  Receipt Date: 20190924
  Transmission Date: 20200122
  Serious: Yes (Hospitalization)
  Sender: FDA-Public Use
  Company Number: None

PATIENT
  Age: 49 Year
  Sex: Female
  Weight: 221.2 kg

DRUGS (11)
  1. HYDROCODONE-ACETAMINOPRH 10MG/325MG [Concomitant]
  2. VITAMIN B12 2500MCG [Concomitant]
  3. CEFEPIME 2GM IV EVERY 8 HRS [Concomitant]
  4. ASPIRIN 81MG DAILY [Concomitant]
     Active Substance: ASPIRIN
  5. MELOXICAM 7.5MG [Concomitant]
     Active Substance: MELOXICAM
  6. VANCOMYCIN [Concomitant]
     Active Substance: VANCOMYCIN
  7. VANCOMYCIN 5GM [Suspect]
     Active Substance: VANCOMYCIN
     Indication: BIOPSY
     Route: 042
     Dates: start: 20190912, end: 20190915
  8. ADIPEX-P 37.5MG PO DAILY [Concomitant]
  9. ATENOLOL - CHLORTHALIDONE 50MG/25MG [Concomitant]
  10. NICOTINE 21MG/24HR TRANSDERMAL PATCH TOPICALLY [Concomitant]
  11. PANTOPRAZOLE 40MG [Concomitant]
     Active Substance: PANTOPRAZOLE SODIUM

REACTIONS (7)
  - Rash pruritic [None]
  - Oral mucosal blistering [None]
  - Rash [None]
  - Linear IgA disease [None]
  - Drug eruption [None]
  - Rash macular [None]
  - Blister [None]

NARRATIVE: CASE EVENT DATE: 20190915
